FAERS Safety Report 10597270 (Version 1)
Quarter: 2014Q4

REPORT INFORMATION
  Report Type: Spontaneous
  Country: US (occurrence: US)
  Receive Date: 20141121
  Receipt Date: 20141121
  Transmission Date: 20150529
  Serious: Yes (Other)
  Sender: FDA-Public Use
  Company Number: US-009507513-1411USA008959

PATIENT
  Age: 75 Year
  Sex: Male

DRUGS (9)
  1. JANUVIA [Suspect]
     Active Substance: SITAGLIPTIN PHOSPHATE
     Indication: DIABETES MELLITUS
     Dosage: 100 MG, ONCE A DAY
     Route: 048
     Dates: start: 201404, end: 20141110
  2. ZETIA [Concomitant]
     Active Substance: EZETIMIBE
  3. FUROSEMIDE. [Concomitant]
     Active Substance: FUROSEMIDE
  4. LIPITOR [Concomitant]
     Active Substance: ATORVASTATIN CALCIUM
  5. TRILAFON [Concomitant]
     Active Substance: PERPHENAZINE
  6. XANAX [Concomitant]
     Active Substance: ALPRAZOLAM
  7. PANTOPRAZOLE [Concomitant]
     Active Substance: PANTOPRAZOLE SODIUM
  8. NASONEX [Concomitant]
     Active Substance: MOMETASONE FUROATE
  9. ASPIRIN. [Concomitant]
     Active Substance: ASPIRIN

REACTIONS (1)
  - Seizure [Unknown]

NARRATIVE: CASE EVENT DATE: 20141107
